FAERS Safety Report 9097936 (Version 1)
Quarter: 2013Q1

REPORT INFORMATION
  Report Type: Spontaneous
  Country: US (occurrence: US)
  Receive Date: 20130212
  Receipt Date: 20130212
  Transmission Date: 20140127
  Serious: No
  Sender: FDA-Public Use
  Company Number: US-PFIZER INC-2013054235

PATIENT
  Age: 36 Year
  Sex: Female
  Weight: 60.32 kg

DRUGS (3)
  1. ADVIL [Suspect]
     Indication: HEADACHE
     Dosage: UNK, 2X/WEEK
     Dates: start: 2000, end: 2013
  2. ADVIL [Suspect]
     Indication: PAIN
  3. ADVIL [Suspect]
     Indication: DYSMENORRHOEA

REACTIONS (4)
  - Drug ineffective [Unknown]
  - Malaise [Unknown]
  - Laboratory test abnormal [Unknown]
  - Blood immunoglobulin E increased [Unknown]
